FAERS Safety Report 7413264-7 (Version None)
Quarter: 2011Q2

REPORT INFORMATION
  Report Type: 
  Country: None (occurrence: None)
  Receive Date: 20110413
  Receipt Date: 20110407
  Transmission Date: 20111010
  Serious: Yes (Other)
  Sender: FDA-Public Use
  Company Number: CN-PFIZER INC-2011077565

PATIENT
  Age: 16 Year
  Sex: Male

DRUGS (1)
  1. ZYVOX [Suspect]
     Dosage: 600 MG, 1X/DAY
     Route: 041
     Dates: start: 20110310, end: 20110311

REACTIONS (5)
  - ACID BASE BALANCE ABNORMAL [None]
  - ELECTROLYTE IMBALANCE [None]
  - MULTI-ORGAN DISORDER [None]
  - RENAL FAILURE CHRONIC [None]
  - DISSEMINATED INTRAVASCULAR COAGULATION [None]
